FAERS Safety Report 7928499-4 (Version None)
Quarter: 2011Q4

REPORT INFORMATION
  Report Type: 
  Country: None (occurrence: None)
  Receive Date: 20111118
  Receipt Date: 20111108
  Transmission Date: 20120403
  Serious: Yes (Other)
  Sender: FDA-Public Use
  Company Number: FR-ELI_LILLY_AND_COMPANY-FR201111004857

PATIENT
  Age: 81 Year
  Sex: Male

DRUGS (1)
  1. FLUOXETINE HCL [Suspect]

REACTIONS (2)
  - AGGRESSION [None]
  - SUICIDE ATTEMPT [None]
